FAERS Safety Report 9956646 (Version 1)
Quarter: 2014Q1

REPORT INFORMATION
  Report Type: Report from Study
  Country: US (occurrence: US)
  Receive Date: 20140304
  Receipt Date: 20140304
  Transmission Date: 20141002
  Serious: No
  Sender: FDA-Public Use
  Company Number: US-ABBVIE-13P-163-1089685-00

PATIENT
  Age: 45 Year
  Sex: Female

DRUGS (4)
  1. HUMIRA [Suspect]
     Indication: CROHN^S DISEASE
  2. HUMIRA [Suspect]
     Dates: start: 201303
  3. ENTOCORT [Concomitant]
     Indication: INFLAMMATION
     Dosage: 1 TO 2 TIMES PER DAY
  4. LOMOTIL [Concomitant]
     Indication: CROHN^S DISEASE
     Dosage: 1 TO 2 TIMES A DAY

REACTIONS (4)
  - Fatigue [Unknown]
  - Hot flush [Unknown]
  - Chest discomfort [Unknown]
  - Dizziness [Unknown]
